FAERS Safety Report 12657140 (Version 1)
Quarter: 2016Q3

REPORT INFORMATION
  Report Type: Spontaneous
  Country: US (occurrence: US)
  Receive Date: 20160816
  Receipt Date: 20160816
  Transmission Date: 20161109
  Serious: Yes (Death, Life-Threatening, Hospitalization, Other)
  Sender: FDA-Public Use
  Company Number: US-PURDUE-USA-2016-0132906

PATIENT
  Age: 79 Year
  Sex: Female

DRUGS (1)
  1. OXYCONTIN [Suspect]
     Active Substance: OXYCODONE HYDROCHLORIDE
     Indication: PAIN MANAGEMENT
     Dosage: 30 MG, TID
     Route: 048

REACTIONS (9)
  - Organ failure [Recovering/Resolving]
  - Malaise [Unknown]
  - Dysphagia [Unknown]
  - Off label use [Unknown]
  - Atrial fibrillation [Unknown]
  - Sepsis [Fatal]
  - Cardiac failure [Fatal]
  - Wrong technique in product usage process [Unknown]
  - Respiratory distress [Unknown]

NARRATIVE: CASE EVENT DATE: 20160518
